FAERS Safety Report 4915967-2 (Version None)
Quarter: 2006Q1

REPORT INFORMATION
  Report Type: 
  Country: None (occurrence: None)
  Receive Date: 20060214
  Receipt Date: 20060127
  Transmission Date: 20060701
  Serious: Yes (Other)
  Sender: FDA-Public Use
  Company Number: USA050188143

PATIENT
  Age: 83 Year
  Sex: Female
  Weight: 65 kg

DRUGS (9)
  1. CYMBALTA [Suspect]
     Indication: DEPRESSION
     Dosage: 60 + 30 MG, DAILY (1/D)
     Dates: start: 20050102
  2. CYMBALTA [Suspect]
     Indication: DEPRESSION
     Dosage: 60 + 30 MG, DAILY (1/D)
     Dates: start: 20051130
  3. CYMBALTA [Suspect]
  4. REMERON (MIRTAZAPINE ORIFARM) [Concomitant]
  5. SYNTHROID [Concomitant]
  6. ATENOLOL [Concomitant]
  7. ANTIHYPERTENSIVE THERAPY UNSPECIFIED [Concomitant]
  8. KLONOPIN [Concomitant]
  9. BENICAR [Concomitant]

REACTIONS (12)
  - ANXIETY [None]
  - BLOOD PRESSURE INCREASED [None]
  - CHILLS [None]
  - DRUG INEFFECTIVE [None]
  - FATIGUE [None]
  - HEADACHE [None]
  - NEGATIVE THOUGHTS [None]
  - SEDATION [None]
  - SLEEP DISORDER [None]
  - STOMACH DISCOMFORT [None]
  - STRESS [None]
  - THINKING ABNORMAL [None]
